FAERS Safety Report 7618478-9 (Version None)
Quarter: 2011Q3

REPORT INFORMATION
  Report Type: 
  Country: None (occurrence: None)
  Receive Date: 20110718
  Receipt Date: 20110711
  Transmission Date: 20111222
  Serious: Yes (Life-Threatening, Hospitalization)
  Sender: FDA-Public Use
  Company Number: US-MERCK-1106USA03519

PATIENT
  Age: 10 Year
  Sex: Male

DRUGS (2)
  1. SINGULAIR [Suspect]
     Dosage: AM
     Route: 048
     Dates: start: 20110404, end: 20110504
  2. SINGULAIR [Suspect]
     Indication: ASTHMA
     Route: 048
     Dates: start: 20050601, end: 20110301

REACTIONS (8)
  - SUICIDAL IDEATION [None]
  - DEPRESSION [None]
  - CHEST PAIN [None]
  - PARAESTHESIA [None]
  - OROPHARYNGEAL PAIN [None]
  - ANXIETY [None]
  - SLEEP TERROR [None]
  - INSOMNIA [None]
